FAERS Safety Report 17610417 (Version 2)
Quarter: 2020Q2

REPORT INFORMATION
  Report Type: Spontaneous
  Country: US (occurrence: US)
  Receive Date: 20200401
  Receipt Date: 20200403
  Transmission Date: 20200713
  Serious: No
  Sender: FDA-Public Use
  Company Number: US-PFIZER INC-2019087984

PATIENT
  Age: 48 Year
  Sex: Female

DRUGS (1)
  1. PREMPRO [Suspect]
     Active Substance: ESTROGENS, CONJUGATED\MEDROXYPROGESTERONE ACETATE
     Indication: NEUROPATHIC ARTHROPATHY
     Dosage: 1 DF, DAILY (ONE TABLET BY MOUTH)
     Route: 048

REACTIONS (5)
  - Night sweats [Unknown]
  - Disease recurrence [Unknown]
  - Product use in unapproved indication [Unknown]
  - Body temperature fluctuation [Unknown]
  - Off label use [Unknown]
